FAERS Safety Report 9424659 (Version 1)
Quarter: 2013Q3

REPORT INFORMATION
  Report Type: Spontaneous
  Country: FR (occurrence: None)
  Receive Date: 20130725
  Receipt Date: 20130725
  Transmission Date: 20140515
  Serious: Yes (Death, Other)
  Sender: FDA-Public Use
  Company Number: ACO_37534_2013

PATIENT
  Sex: Female

DRUGS (2)
  1. FAMPYRA [Suspect]
     Indication: GAIT DISTURBANCE
     Route: 048
  2. TYSABRI (NATALIZUMAB) [Concomitant]

REACTIONS (2)
  - Breast abscess [None]
  - Completed suicide [None]
